FAERS Safety Report 6227834-5 (Version None)
Quarter: 2009Q2

REPORT INFORMATION
  Report Type: 
  Country: None (occurrence: None)
  Receive Date: 20090612
  Receipt Date: 20090601
  Transmission Date: 20091009
  Serious: Yes (Hospitalization)
  Sender: FDA-Public Use
  Company Number: A0790193A

PATIENT
  Age: 52 Year
  Sex: Male

DRUGS (2)
  1. AVANDIA [Suspect]
     Dosage: 8MG SINGLE DOSE
     Route: 048
     Dates: start: 20041001, end: 20070401
  2. AVANDARYL [Suspect]
     Dosage: 4MG SINGLE DOSE
     Route: 048
     Dates: start: 20070401, end: 20070601

REACTIONS (3)
  - CEREBROVASCULAR ACCIDENT [None]
  - COMPLEX PARTIAL SEIZURES [None]
  - VISUAL FIELD DEFECT [None]
